FAERS Safety Report 6474002-8 (Version None)
Quarter: 2009Q4

REPORT INFORMATION
  Report Type: 
  Country: None (occurrence: None)
  Receive Date: 20091204
  Receipt Date: 20091125
  Transmission Date: 20100525
  Serious: Yes (Hospitalization)
  Sender: FDA-Public Use
  Company Number: JP-ASTRAZENECA-2009SE23089

PATIENT
  Age: 71 Year
  Sex: Male
  Weight: 64 kg

DRUGS (7)
  1. CRESTOR [Suspect]
     Indication: HYPERLIPIDAEMIA
     Route: 048
     Dates: start: 20080301, end: 20090926
  2. AMARYL [Concomitant]
     Indication: DIABETES MELLITUS
     Route: 048
  3. ASPIRIN [Concomitant]
     Indication: MYOCARDIAL INFARCTION
     Route: 048
  4. PLETAL [Concomitant]
     Indication: MYOCARDIAL INFARCTION
     Route: 048
  5. DISOPYRAMIDE [Concomitant]
     Indication: ATRIAL FIBRILLATION
     Route: 048
  6. SAIKO-KEISHI-TO [Concomitant]
     Indication: GASTROENTERITIS
     Route: 048
     Dates: end: 20090926
  7. PRIMPERAN TAB [Concomitant]
     Indication: GASTROENTERITIS
     Route: 048
     Dates: end: 20090926

REACTIONS (2)
  - RENAL FAILURE ACUTE [None]
  - RHABDOMYOLYSIS [None]
